FAERS Safety Report 16075497 (Version 3)
Quarter: 2019Q2

REPORT INFORMATION
  Report Type: Spontaneous
  Country: AR (occurrence: AR)
  Receive Date: 20190315
  Receipt Date: 20190407
  Transmission Date: 20190711
  Serious: Yes (Death, Hospitalization)
  Sender: FDA-Public Use
  Company Number: AR-BAXTER-2019BAX005087

PATIENT
  Age: 72 Year
  Sex: Female

DRUGS (1)
  1. DIANEAL [Suspect]
     Active Substance: CALCIUM CHLORIDE\DEXTROSE\MAGNESIUM CHLORIDE\SODIUM CHLORIDE\SODIUM LACTATE
     Indication: CHRONIC KIDNEY DISEASE
     Route: 033
     Dates: end: 20190305

REACTIONS (3)
  - Peritonitis bacterial [Unknown]
  - General physical health deterioration [Fatal]
  - Infection [Fatal]

NARRATIVE: CASE EVENT DATE: 201902
